FAERS Safety Report 6478477-X (Version None)
Quarter: 2009Q4

REPORT INFORMATION
  Report Type: 
  Country: None (occurrence: None)
  Receive Date: 20091207
  Receipt Date: 20091102
  Transmission Date: 20100525
  Serious: Yes (Hospitalization)
  Sender: FDA-Public Use
  Company Number: US-SANOFI-AVENTIS-200913167US

PATIENT
  Age: 53 Year
  Sex: Male

DRUGS (10)
  1. LANTUS [Suspect]
     Route: 058
     Dates: start: 20090101, end: 20090413
  2. SOLOSTAR [Suspect]
     Dosage: DOSE AS USED: 20 UNITS
     Route: 058
     Dates: start: 20090101, end: 20090413
  3. PLAVIX [Concomitant]
  4. IMDUR [Concomitant]
  5. METFORMIN HCL [Concomitant]
  6. ESOMEPRAZOLE [Concomitant]
  7. ORAL ANTIDIABETICS [Concomitant]
  8. LOPID [Concomitant]
  9. AMLODIPINE BESYLATE AND BENAZEPRIL HCL [Concomitant]
     Dosage: DOSE AS USED: 5/20 MG
  10. ZOCOR [Concomitant]

REACTIONS (2)
  - CEREBROVASCULAR ACCIDENT [None]
  - RASH PRURITIC [None]
